FAERS Safety Report 9246998 (Version 1)
Quarter: 2013Q2

REPORT INFORMATION
  Report Type: Spontaneous
  Country: US (occurrence: US)
  Receive Date: 20130422
  Receipt Date: 20130422
  Transmission Date: 20140414
  Serious: Yes (Other)
  Sender: FDA-Public Use
  Company Number: US-ABBOTT-13P-163-1077372-00

PATIENT
  Sex: 0

DRUGS (3)
  1. CLARITHROMYCIN [Suspect]
     Indication: BRONCHITIS
  2. LEVEMIR [Interacting]
     Indication: PRODUCT USED FOR UNKNOWN INDICATION
  3. LEVEMIR [Interacting]
     Dosage: 2/3 DOSE

REACTIONS (5)
  - Hypoglycaemia [Unknown]
  - Drug interaction [Unknown]
  - Depressed level of consciousness [Recovering/Resolving]
  - Tremor [Unknown]
  - Feeling cold [Unknown]
